FAERS Safety Report 9178247 (Version 6)
Quarter: 2013Q2

REPORT INFORMATION
  Report Type: Spontaneous
  Country: CO (occurrence: CO)
  Receive Date: 20130321
  Receipt Date: 20130520
  Transmission Date: 20140414
  Serious: Yes (Other)
  Sender: FDA-Public Use
  Company Number: CO-VERTEX PHARMACEUTICALS INC.-2013-003896

PATIENT
  Age: 62 Year
  Sex: Male
  Weight: 92 kg

DRUGS (5)
  1. INCIVO [Suspect]
     Indication: HEPATITIS C
     Dosage: 750 MG, TID
     Route: 048
     Dates: start: 20130306
  2. PEGINTERFERON ALFA-2A [Concomitant]
     Indication: HEPATITIS C
     Dosage: 120 ?G, QW
     Route: 058
     Dates: start: 20130306
  3. PEGINTERFERON ALFA-2A [Concomitant]
     Dosage: 100 ?G, QW
     Dates: start: 20130306
  4. RIBAVIRIN [Concomitant]
     Indication: HEPATITIS C
     Dosage: 200 MG, UNK (5 EVERY 12 HOUR)
     Route: 048
     Dates: start: 20130306
  5. RIBAVIRIN [Concomitant]
     Dosage: 200 MG, UNK (3 EVERY 12 HOURS)
     Route: 048
     Dates: start: 20130306

REACTIONS (13)
  - Epistaxis [Unknown]
  - Neutrophil count decreased [Unknown]
  - Depression [Unknown]
  - Aggression [Unknown]
  - Aggression [Unknown]
  - Haemoglobin decreased [Unknown]
  - Myalgia [Unknown]
  - Arthralgia [Unknown]
  - Constipation [Recovered/Resolved]
  - Crying [Unknown]
  - Feeling of despair [Unknown]
  - Rash [Unknown]
  - Skin odour abnormal [Unknown]
